FAERS Safety Report 7922108-6 (Version None)
Quarter: 2011Q4

REPORT INFORMATION
  Report Type: 
  Country: None (occurrence: None)
  Receive Date: 20111117
  Receipt Date: 20110412
  Transmission Date: 20120403
  Serious: No
  Sender: FDA-Public Use
  Company Number: US-AMGEN-USASP2011019432

PATIENT
  Age: 55 Year
  Sex: Male

DRUGS (1)
  1. ENBREL [Suspect]
     Indication: RHEUMATOID ARTHRITIS
     Dosage: 50 MG, QWK
     Dates: start: 20101021

REACTIONS (6)
  - JOINT STIFFNESS [None]
  - MUSCULOSKELETAL DISCOMFORT [None]
  - MOBILITY DECREASED [None]
  - LABORATORY TEST ABNORMAL [None]
  - MUSCULOSKELETAL STIFFNESS [None]
  - POOR QUALITY SLEEP [None]
